FAERS Safety Report 14459720 (Version 1)
Quarter: 2018Q1

REPORT INFORMATION
  Report Type: Spontaneous
  Country: IT (occurrence: IT)
  Receive Date: 20180130
  Receipt Date: 20180130
  Transmission Date: 20180509
  Serious: Yes (Hospitalization)
  Sender: FDA-Public Use
  Company Number: IT-SA-2018SA018512

PATIENT
  Age: 93 Year
  Sex: Female

DRUGS (3)
  1. ZOLPIDEM [Suspect]
     Active Substance: ZOLPIDEM\ZOLPIDEM TARTRATE
     Indication: DRUG ABUSE
     Route: 048
     Dates: start: 20171014, end: 20171014
  2. DIURESIX [Concomitant]
     Active Substance: TORSEMIDE
     Route: 048
  3. CONGESCOR [Concomitant]
     Active Substance: BISOPROLOL
     Route: 048

REACTIONS (2)
  - Sopor [Unknown]
  - Atrioventricular block [Unknown]

NARRATIVE: CASE EVENT DATE: 20171014
